FAERS Safety Report 21749562 (Version 1)
Quarter: 2022Q4

REPORT INFORMATION
  Report Type: Spontaneous
  Country: US (occurrence: None)
  Receive Date: 20221217
  Receipt Date: 20221217
  Transmission Date: 20230113
  Serious: Yes (Hospitalization)
  Sender: FDA-Public Use
  Company Number: None

PATIENT
  Age: 82 Year
  Sex: Female

DRUGS (1)
  1. PROMACTA [Suspect]
     Active Substance: ELTROMBOPAG OLAMINE
     Indication: Thrombocytopenia
     Dosage: 12.5MG ONCE DAILY ORAL?
     Route: 048
     Dates: start: 20220712

REACTIONS (3)
  - Fall [None]
  - Wrist fracture [None]
  - Hip fracture [None]

NARRATIVE: CASE EVENT DATE: 20220927
